FAERS Safety Report 8974410 (Version 1)
Quarter: 2012Q4

REPORT INFORMATION
  Report Type: Spontaneous
  Country: GB (occurrence: None)
  Receive Date: 20121214
  Receipt Date: 20121214
  Transmission Date: 20130627
  Serious: Yes (Life-Threatening, Hospitalization)
  Sender: FDA-Public Use
  Company Number: 2012-21875

PATIENT
  Age: 62 Year
  Sex: Male
  Weight: 81 kg

DRUGS (6)
  1. NAPROXEN SODIUM [Suspect]
     Indication: DRUG USE FOR UNKNOWN INDICATION
     Dates: start: 20121023
  2. ATORVASTATIN (ATORVASTATIN) [Concomitant]
  3. MACROGOL (MACROGOL) [Concomitant]
  4. CIPROFLOXACIN (CIPROFLOXACIN) [Concomitant]
  5. FLUCLOXACILLIN (FLUCLOXACILLIN) [Concomitant]
  6. LANSOPRAZOLE (LANSOPRAZOLE) [Concomitant]

REACTIONS (1)
  - Renal failure acute [None]
